FAERS Safety Report 6000747-X (Version None)
Quarter: 2008Q4

REPORT INFORMATION
  Report Type: 
  Country: None (occurrence: None)
  Receive Date: 20081211
  Receipt Date: 20081126
  Transmission Date: 20090506
  Serious: Yes (Death, Other)
  Sender: FDA-Public Use
  Company Number: 2008S1000538

PATIENT
  Age: 20 Year
  Sex: Male

DRUGS (7)
  1. ACITRETIN [Suspect]
     Indication: MYCOSIS FUNGOIDES
     Dosage: 20 MG; QD; PO
     Route: 048
  2. INTERFERON ALFA [Suspect]
     Indication: MYCOSIS FUNGOIDES
  3. CYCLOPHOSPHAMIDE [Suspect]
     Indication: MYCOSIS FUNGOIDES
  4. DOXORUBICIN HCL [Suspect]
     Indication: MYCOSIS FUNGOIDES
  5. VINCRISTINE [Suspect]
     Indication: MYCOSIS FUNGOIDES
  6. PREDNISONE [Suspect]
     Indication: MYCOSIS FUNGOIDES
  7. CHEMOTHERAPY UNSPECIFIED (NO PREF. NAME) [Suspect]
     Indication: MYCOSIS FUNGOIDES

REACTIONS (5)
  - AXILLARY MASS [None]
  - CONDITION AGGRAVATED [None]
  - HEPATOSPLENOMEGALY [None]
  - LYMPHADENOPATHY [None]
  - SEPSIS [None]
